FAERS Safety Report 8309467-X (Version None)
Quarter: 2012Q2

REPORT INFORMATION
  Report Type: 
  Country: None (occurrence: None)
  Receive Date: 20120424
  Receipt Date: 20120424
  Transmission Date: 20120825
  Serious: No
  Sender: FDA-Public Use
  Company Number: None

PATIENT
  Age: 43 Year
  Sex: Female
  Weight: 86.1834 kg

DRUGS (2)
  1. FERROUS SUL TAB [Suspect]
     Indication: IRON DEFICIENCY
     Dosage: 325 MG DAILY
     Dates: start: 20120401, end: 20120420
  2. LEVOXYL [Concomitant]

REACTIONS (1)
  - DIARRHOEA [None]
